FAERS Safety Report 4708797-8 (Version None)
Quarter: 2005Q3

REPORT INFORMATION
  Report Type: 
  Country: None (occurrence: None)
  Receive Date: 20050705
  Receipt Date: 20050620
  Transmission Date: 20060218
  Serious: Yes (Other)
  Sender: FDA-Public Use
  Company Number: 033-3

PATIENT
  Age: 75 Year
  Sex: Female

DRUGS (3)
  1. TEVETEN HCT [Suspect]
     Indication: HYPERTENSION
     Dates: start: 20041030, end: 20041223
  2. TANNOXIFEN [Concomitant]
  3. THYROXIN [Concomitant]

REACTIONS (2)
  - DIZZINESS [None]
  - HYPERTENSIVE CRISIS [None]
